FAERS Safety Report 14360983 (Version 1)
Quarter: 2018Q1

REPORT INFORMATION
  Report Type: Report from Study
  Country: DE (occurrence: DE)
  Receive Date: 20180107
  Receipt Date: 20180107
  Transmission Date: 20180509
  Serious: No
  Sender: FDA-Public Use
  Company Number: DE-SHIRE-DE201734430

PATIENT

DRUGS (10)
  1. DEKRISTOL [Concomitant]
     Active Substance: CHOLECALCIFEROL
     Indication: HYPOPARATHYROIDISM
  2. LEVEMIR [Concomitant]
     Active Substance: INSULIN DETEMIR
     Indication: PRODUCT USED FOR UNKNOWN INDICATION
  3. BISOPROLOL [Concomitant]
     Active Substance: BISOPROLOL
  4. METFORMIN [Concomitant]
     Active Substance: METFORMIN HYDROCHLORIDE
  5. DELIX                              /00885601/ [Concomitant]
     Active Substance: RAMIPRIL
  6. VICTOZA [Concomitant]
     Active Substance: LIRAGLUTIDE
  7. CALCIUM SANDOZ FORTE + D [Concomitant]
     Indication: HYPOPARATHYROIDISM
  8. NATPARA (PARATHYROID HORMONE) [Suspect]
     Active Substance: PARATHYROID HORMONE
     Indication: HYPOPARATHYROIDISM
     Dosage: 25 ?G, 1X/DAY:QD
     Route: 058
     Dates: start: 20171108
  9. L-THYROXIN                         /00068001/ [Concomitant]
     Active Substance: LEVOTHYROXINE
     Indication: THYROID OPERATION
  10. ROCALTROL [Concomitant]
     Active Substance: CALCITRIOL

REACTIONS (7)
  - Vomiting [Recovered/Resolved]
  - Nausea [Recovering/Resolving]
  - Bone pain [Unknown]
  - Myalgia [Not Recovered/Not Resolved]
  - Abdominal discomfort [Recovering/Resolving]
  - Headache [Recovered/Resolved]
  - Decreased appetite [Recovering/Resolving]

NARRATIVE: CASE EVENT DATE: 20171108
